FAERS Safety Report 5698024-X (Version None)
Quarter: 2008Q2

REPORT INFORMATION
  Report Type: 
  Country: None (occurrence: None)
  Receive Date: 20080408
  Receipt Date: 20080327
  Transmission Date: 20081010
  Serious: Yes (Hospitalization)
  Sender: FDA-Public Use
  Company Number: FR-WYE-H03494108

PATIENT
  Sex: Female

DRUGS (4)
  1. CORDARONE [Suspect]
     Indication: ATRIAL FIBRILLATION
     Dosage: NOT PROVIDED
     Route: 048
     Dates: start: 20050401, end: 20060701
  2. LEVOTHYROXINE SODIUM [Concomitant]
     Indication: HYPOTHYROIDISM
     Route: 048
  3. ZYLORIC [Concomitant]
     Indication: HYPERURICAEMIA
     Dosage: NOT PROVIDED
     Route: 048
  4. ALDALIX [Concomitant]
     Indication: CARDIAC FAILURE
     Dosage: NOT PROVIDED
     Route: 048

REACTIONS (4)
  - CHOLECYSTITIS ACUTE [None]
  - CHOLESTASIS [None]
  - HEPATIC CIRRHOSIS [None]
  - HEPATIC STEATOSIS [None]
